FAERS Safety Report 7563789-9 (Version None)
Quarter: 2011Q2

REPORT INFORMATION
  Report Type: 
  Country: None (occurrence: None)
  Receive Date: 20110622
  Receipt Date: 20110614
  Transmission Date: 20111010
  Serious: Yes (Hospitalization, Other)
  Sender: FDA-Public Use
  Company Number: JP-CEPHALON-2011001420

PATIENT
  Age: 70 Year
  Sex: Male

DRUGS (10)
  1. BENDAMUSTINE HCL [Suspect]
     Indication: B-CELL LYMPHOMA
     Route: 041
     Dates: start: 20110310, end: 20110422
  2. SULFAMETHOXAZOLE AND TRIMETHOPRIM [Concomitant]
     Dates: start: 20110310
  3. LENOGRASTIM [Concomitant]
     Dates: start: 20110317, end: 20110323
  4. VALACICLOVIR HCL [Concomitant]
     Dates: start: 20110310
  5. GRANISETRON HCL [Concomitant]
     Dates: start: 20110310, end: 20110311
  6. HYDROCORTISONE SODIUM PHOSPHATE [Concomitant]
     Dates: start: 20110310, end: 20110310
  7. LEVOFLOXACINC [Concomitant]
     Dates: start: 20110317, end: 20110326
  8. RITUXIMAB [Concomitant]
     Indication: B-CELL LYMPHOMA
     Dates: start: 20110310, end: 20110421
  9. DEXAMETHASONE SODIUM PHOSPHATE [Concomitant]
     Dates: start: 20110310, end: 20110311
  10. BENDAMUSTINE HCL [Suspect]
     Route: 042
     Dates: start: 20110421, end: 20110422

REACTIONS (8)
  - FEBRILE NEUTROPENIA [None]
  - NEUTROPHIL COUNT DECREASED [None]
  - PHLEBITIS [None]
  - WHITE BLOOD CELL COUNT DECREASED [None]
  - DIARRHOEA [None]
  - AGRANULOCYTOSIS [None]
  - BLOOD BILIRUBIN INCREASED [None]
  - CYTOMEGALOVIRUS INFECTION [None]
